FAERS Safety Report 5955262-6 (Version None)
Quarter: 2008Q4

REPORT INFORMATION
  Report Type: 
  Country: None (occurrence: None)
  Receive Date: 20081117
  Receipt Date: 20081111
  Transmission Date: 20090506
  Serious: Yes (Other)
  Sender: FDA-Public Use
  Company Number: PHEH2008US10129

PATIENT
  Age: 8 Year
  Sex: Female

DRUGS (1)
  1. FOCALIN XR [Suspect]
     Dosage: 10 MG, UNK

REACTIONS (3)
  - AGGRESSION [None]
  - ANGER [None]
  - ILLUSION [None]
